FAERS Safety Report 7859255-3 (Version None)
Quarter: 2011Q4

REPORT INFORMATION
  Report Type: 
  Country: None (occurrence: None)
  Receive Date: 20111027
  Receipt Date: 20111027
  Transmission Date: 20120403
  Serious: Yes (Life-Threatening)
  Sender: FDA-Public Use
  Company Number: None

PATIENT
  Age: 61 Year
  Sex: Female
  Weight: 72.574 kg

DRUGS (2)
  1. CRESTOR [Suspect]
     Indication: ANGINA PECTORIS
     Dosage: 5MG
     Route: 048
     Dates: start: 20110822, end: 20110924
  2. CRESTOR [Suspect]
     Indication: BLOOD CHOLESTEROL INCREASED
     Dosage: 5MG
     Route: 048
     Dates: start: 20110822, end: 20110924

REACTIONS (7)
  - LOSS OF CONTROL OF LEGS [None]
  - FALL [None]
  - BACK INJURY [None]
  - LIMB INJURY [None]
  - CONTUSION [None]
  - JOINT INJURY [None]
  - ARTHRALGIA [None]
